FAERS Safety Report 25257246 (Version 1)
Quarter: 2025Q2

REPORT INFORMATION
  Report Type: Spontaneous
  Country: TR (occurrence: TR)
  Receive Date: 20250430
  Receipt Date: 20250430
  Transmission Date: 20250717
  Serious: Yes (Disabling)
  Sender: ORGANON
  Company Number: TR-MLMSERVICE-20250416-PI482809-00226-1

PATIENT
  Age: 15 Year
  Sex: Male

DRUGS (2)
  1. MIRTAZAPINE [Suspect]
     Active Substance: MIRTAZAPINE
     Indication: Post-traumatic stress disorder
     Dosage: 7.5 MG/DAY FOR 2 MONTHS
  2. MIRTAZAPINE [Suspect]
     Active Substance: MIRTAZAPINE
     Indication: Depressive symptom

REACTIONS (2)
  - Tic [Recovered/Resolved]
  - Underdose [Unknown]
